FAERS Safety Report 24433930 (Version 2)
Quarter: 2024Q4

REPORT INFORMATION
  Report Type: Report from Study
  Country: JP (occurrence: JP)
  Receive Date: 20241014
  Receipt Date: 20241030
  Transmission Date: 20250114
  Serious: Yes (Death)
  Sender: AEGERION
  Company Number: JP-CHIESI LTD.-AEGR007453

PATIENT

DRUGS (1)
  1. FILSUVEZ [Suspect]
     Active Substance: BIRCH TRITERPENES
     Indication: Epidermolysis bullosa
     Dosage: UNK
     Route: 061

REACTIONS (4)
  - Septic shock [Fatal]
  - Acinetobacter infection [Fatal]
  - Pseudomonas infection [Fatal]
  - Skin infection [Fatal]
